FAERS Safety Report 9089884 (Version 1)
Quarter: 2013Q1

REPORT INFORMATION
  Report Type: Report from Study
  Country: US (occurrence: US)
  Receive Date: 20130131
  Receipt Date: 20130131
  Transmission Date: 20140127
  Serious: No
  Sender: FDA-Public Use
  Company Number: US-ABBOTT-12P-163-0996897-00

PATIENT
  Age: 36 Year
  Sex: Female

DRUGS (4)
  1. HUMIRA [Suspect]
     Indication: PSORIATIC ARTHROPATHY
     Dates: start: 20111101
  2. NAPROXEN [Concomitant]
     Indication: INFLAMMATION
  3. TRAMADOL [Concomitant]
     Indication: PAIN
     Dosage: 10MG EVERY 4 HOURS AS NEEDED
  4. CYCLOBENZAPRINE [Concomitant]
     Indication: MUSCLE RELAXANT THERAPY
     Dosage: 10MG 2 TABS AT BEDTIME

REACTIONS (10)
  - Overweight [Unknown]
  - Injection site bruising [Recovering/Resolving]
  - Psoriasis [Unknown]
  - Pain [Unknown]
  - Fatigue [Unknown]
  - Oedema [Unknown]
  - Inappropriate schedule of drug administration [Unknown]
  - Sinusitis [Unknown]
  - Sinusitis [Unknown]
  - Urinary tract infection [Unknown]
